FAERS Safety Report 6398636-4 (Version None)
Quarter: 2009Q4

REPORT INFORMATION
  Report Type: 
  Country: None (occurrence: None)
  Receive Date: 20091013
  Receipt Date: 20090825
  Transmission Date: 20100525
  Serious: Yes (Death)
  Sender: FDA-Public Use
  Company Number: JP-PFIZER INC-2009226412

PATIENT
  Age: 79 Year
  Sex: Male

DRUGS (20)
  1. ARGATROBAN [Suspect]
     Indication: HEPARIN-INDUCED THROMBOCYTOPENIA
     Dosage: 0.2 MCG/KG/MIN
     Route: 041
     Dates: start: 20090527, end: 20090531
  2. ARGATROBAN [Suspect]
     Dosage: 0.7 MCG/KG/MIN (0.7 MCG,1 IN 1 MIN)
     Route: 041
     Dates: start: 20090531, end: 20090608
  3. NOVORAPID [Concomitant]
     Dosage: 16 IU, UNK
     Route: 058
     Dates: start: 20090319, end: 20090608
  4. FRANDOL [Concomitant]
     Dosage: 40 MG, UNK
     Route: 061
     Dates: start: 20090320, end: 20090608
  5. ASPIRIN [Concomitant]
     Dosage: 100 MG, UNK
     Route: 048
     Dates: start: 20090320, end: 20090608
  6. MAINTATE [Concomitant]
     Dosage: 2.5 MG, UNK
     Route: 048
     Dates: start: 20090323, end: 20090608
  7. ALOSENN [Concomitant]
     Indication: CONSTIPATION
     Dosage: 1 G, UNK
     Route: 048
     Dates: start: 20090404, end: 20090608
  8. NOVOLIN N [Concomitant]
     Dosage: 8 IU, UNK
     Route: 058
     Dates: start: 20090427, end: 20090608
  9. EVIPROSTAT [Concomitant]
     Dosage: 6 DF, UNK
     Route: 048
     Dates: start: 20090503, end: 20090608
  10. HEPARIN SODIUM [Concomitant]
     Dosage: UNK
     Route: 051
     Dates: start: 20090507
  11. FLIVAS [Concomitant]
     Dosage: 50 MG, UNK
     Route: 048
     Dates: start: 20090517, end: 20090608
  12. EPLERENONE [Concomitant]
     Indication: HYPERTENSION
     Dosage: 50 MG, UNK
     Route: 048
     Dates: start: 20090521, end: 20090608
  13. SELBEX [Concomitant]
     Indication: GASTRITIS
     Dosage: 1.5 G, UNK
     Route: 048
     Dates: start: 20090522, end: 20090608
  14. PREDONINE [Concomitant]
     Dosage: 5 MG, UNK
     Route: 048
     Dates: start: 20090527, end: 20090608
  15. LASIX [Concomitant]
     Indication: CARDIAC FAILURE CONGESTIVE
     Dosage: 40 MG, UNK
     Route: 048
     Dates: start: 20090530, end: 20090608
  16. PARIET [Concomitant]
     Indication: REFLUX OESOPHAGITIS
     Dosage: 10 MG, UNK
     Route: 048
     Dates: start: 20090530, end: 20090608
  17. CLEANAL [Concomitant]
     Indication: SPUTUM RETENTION
     Dosage: 1200 MG, UNK
     Route: 048
     Dates: start: 20090531, end: 20090608
  18. FLAGYL [Concomitant]
     Indication: ENTEROCOLITIS BACTERIAL
     Dosage: 1000 MG, UNK
     Route: 048
     Dates: start: 20090602, end: 20090608
  19. ENTERONON R [Concomitant]
     Dosage: 3 G, UNK
     Route: 048
     Dates: start: 20090602, end: 20090608
  20. DAI-KENCHU-TO [Concomitant]
     Dosage: 15 G, UNK
     Route: 048
     Dates: start: 20090604, end: 20090608

REACTIONS (1)
  - DEATH [None]
